FAERS Safety Report 8240430-3 (Version None)
Quarter: 2012Q1

REPORT INFORMATION
  Report Type: 
  Country: None (occurrence: None)
  Receive Date: 20120328
  Receipt Date: 20120315
  Transmission Date: 20120608
  Serious: No
  Sender: FDA-Public Use
  Company Number: US-B.I. PHARMACEUTICALS,INC./RIDGEFIELD-2012-BP-04989BP

PATIENT
  Sex: Female

DRUGS (5)
  1. METOPROLOL SUCCINATE [Concomitant]
     Indication: ATRIAL FIBRILLATION
     Dosage: 25 MG
     Route: 048
     Dates: start: 20120301
  2. PRADAXA [Suspect]
     Indication: ATRIAL FIBRILLATION
     Dosage: 300 MG
     Route: 048
     Dates: start: 20110101
  3. SYNTHROID [Concomitant]
     Indication: THYROID DISORDER
     Dosage: 100 MCG
     Route: 048
     Dates: start: 20020101
  4. OMEPRAZOLE [Concomitant]
     Indication: GASTROOESOPHAGEAL REFLUX DISEASE
     Dosage: 20 MG
     Route: 048
     Dates: start: 20110101
  5. MULTI-VITAMINS [Concomitant]
     Indication: SUPPLEMENTATION THERAPY

REACTIONS (2)
  - BACK PAIN [None]
  - CONTUSION [None]
